FAERS Safety Report 20937164 (Version 1)
Quarter: 2022Q2

REPORT INFORMATION
  Report Type: Spontaneous
  Country: US (occurrence: US)
  Receive Date: 20220609
  Receipt Date: 20220609
  Transmission Date: 20220720
  Serious: No
  Sender: FDA-Public Use
  Company Number: US-TEVA-2022-US-2037162

PATIENT
  Age: 78 Year
  Sex: Female

DRUGS (1)
  1. LIDOCAINE AND PRILOCAINE [Suspect]
     Active Substance: LIDOCAINE\PRILOCAINE
     Dosage: 2.5-2.5 %
     Route: 065
     Dates: start: 20220405

REACTIONS (2)
  - Recalled product administered [Unknown]
  - White blood cell count decreased [Unknown]
